FAERS Safety Report 5633420-8 (Version None)
Quarter: 2008Q1

REPORT INFORMATION
  Report Type: 
  Country: None (occurrence: None)
  Receive Date: 20080221
  Receipt Date: 20080212
  Transmission Date: 20080703
  Serious: Yes (Hospitalization)
  Sender: FDA-Public Use
  Company Number: GB-ROCHE-542383

PATIENT
  Age: 41 Year
  Sex: Female
  Weight: 94 kg

DRUGS (4)
  1. ORLISTAT [Suspect]
     Indication: OBESITY
     Route: 048
     Dates: start: 20070901, end: 20071125
  2. ZAPONEX [Concomitant]
     Indication: SCHIZOPHRENIA
     Route: 048
  3. AMITRIPTYLINE HCL [Concomitant]
     Dosage: DRUG NAME REPORTED AS AMOTRIPTOLINE
     Route: 048
  4. AMOXICLAV [Concomitant]
     Indication: ANTI-INFECTIVE THERAPY
     Dosage: DRUG NAME:ANTICLAVE
     Route: 048

REACTIONS (5)
  - BLOOD CALCIUM DECREASED [None]
  - BLOOD POTASSIUM DECREASED [None]
  - MAGNESIUM DEFICIENCY [None]
  - PNEUMONIA [None]
  - VITAMIN D DEFICIENCY [None]
